FAERS Safety Report 5475704-2 (Version None)
Quarter: 2007Q4

REPORT INFORMATION
  Report Type: 
  Country: None (occurrence: None)
  Receive Date: 20071001
  Receipt Date: 20070919
  Transmission Date: 20080405
  Serious: Yes (Other)
  Sender: FDA-Public Use
  Company Number: SPV1-2007-04211

PATIENT
  Age: 11 Year
  Sex: Female
  Weight: 25.4 kg

DRUGS (2)
  1. DAYTRANA [Suspect]
     Indication: ATTENTION DEFICIT/HYPERACTIVITY DISORDER
     Dosage: 10 MG, 1X/DAY; QD, TRANSDERMAL; 15 MG, 1X/DAY:QD, TRANSDERMAL
     Route: 062
     Dates: start: 20070713, end: 20070911
  2. DAYTRANA [Suspect]
     Indication: ATTENTION DEFICIT/HYPERACTIVITY DISORDER
     Dosage: 10 MG, 1X/DAY; QD, TRANSDERMAL; 15 MG, 1X/DAY:QD, TRANSDERMAL
     Route: 062
     Dates: start: 20070912, end: 20070914

REACTIONS (2)
  - ABNORMAL BEHAVIOUR [None]
  - COMPLEX PARTIAL SEIZURES [None]
